FAERS Safety Report 11204597 (Version 3)
Quarter: 2015Q3

REPORT INFORMATION
  Report Type: Spontaneous
  Country: US (occurrence: US)
  Receive Date: 20150622
  Receipt Date: 20150720
  Transmission Date: 20151125
  Serious: No
  Sender: FDA-Public Use
  Company Number: US-LEO PHARMA-235137

PATIENT
  Sex: Female

DRUGS (1)
  1. PICATO [Suspect]
     Active Substance: INGENOL MEBUTATE
     Indication: ACTINIC KERATOSIS

REACTIONS (10)
  - Application site dryness [Not Recovered/Not Resolved]
  - Application site pain [Recovered/Resolved]
  - Application site scab [Recovered/Resolved]
  - Drug administered at inappropriate site [Unknown]
  - Malaise [Recovered/Resolved]
  - Eating disorder [Recovered/Resolved]
  - Eye irritation [Recovered/Resolved]
  - Dry mouth [Recovered/Resolved]
  - Nausea [Recovered/Resolved]
  - Abdominal discomfort [Recovered/Resolved]
